FAERS Safety Report 8810164 (Version 1)
Quarter: 2012Q4

REPORT INFORMATION
  Report Type: 
  Country: US (occurrence: US)
  Receive Date: 20120926
  Receipt Date: 20120926
  Transmission Date: 20130627
  Serious: No
  Sender: FDA-Public Use
  Company Number: US-ASTRAZENECA-2012SE73664

PATIENT
  Age: 27 Year
  Sex: Female
  Weight: 59 kg

DRUGS (7)
  1. SEROQUEL [Suspect]
     Indication: BIPOLAR DISORDER
     Route: 048
  2. SEROQUEL [Suspect]
     Indication: SLEEP DISORDER
     Route: 048
  3. SEROQUEL [Suspect]
     Indication: ANXIOLYTIC THERAPY
     Route: 048
  4. SEROQUEL [Suspect]
     Indication: DEPRESSION
     Route: 048
  5. SEROQUEL [Suspect]
     Indication: AFFECTIVE DISORDER
     Route: 048
  6. ADDERALL [Concomitant]
     Indication: ATTENTION DEFICIT/HYPERACTIVITY DISORDER
     Route: 048
  7. XANAX [Concomitant]
     Route: 048

REACTIONS (13)
  - Agitation [Unknown]
  - Anxiety [Unknown]
  - Hyperhidrosis [Unknown]
  - Pain [Unknown]
  - Chills [Unknown]
  - Insomnia [Unknown]
  - Adverse event [Unknown]
  - Psychotic disorder [Unknown]
  - Weight increased [Unknown]
  - Vomiting [Unknown]
  - Withdrawal syndrome [Unknown]
  - Intentional drug misuse [Unknown]
  - Drug dose omission [Unknown]
